FAERS Safety Report 5959108-1 (Version None)
Quarter: 2008Q4

REPORT INFORMATION
  Report Type: 
  Country: None (occurrence: None)
  Receive Date: 20081120
  Receipt Date: 20080114
  Transmission Date: 20090506
  Serious: No
  Sender: FDA-Public Use
  Company Number: A0698674A

PATIENT
  Age: 43 Year
  Sex: Male

DRUGS (1)
  1. BUPROPION HCL [Suspect]
     Route: 048
     Dates: start: 20070926

REACTIONS (2)
  - PRODUCT QUALITY ISSUE [None]
  - SEDATION [None]
